FAERS Safety Report 4949625-5 (Version None)
Quarter: 2006Q1

REPORT INFORMATION
  Report Type: 
  Country: None (occurrence: None)
  Receive Date: 20060315
  Receipt Date: 20060224
  Transmission Date: 20060701
  Serious: Yes (Hospitalization)
  Sender: FDA-Public Use
  Company Number: US_0508120824

PATIENT
  Age: 38 Year
  Sex: Male
  Weight: 141.9 kg

DRUGS (7)
  1. ZYPREXA ZYDIS [Suspect]
     Dosage: SEE IMAGE
     Dates: start: 20010123
  2. ZYPREXA ZYDIS [Suspect]
     Dosage: SEE IMAGE
     Dates: start: 20010126
  3. ZYPREXA [Suspect]
     Dosage: SEE IMAGE
     Dates: start: 20010131, end: 20040901
  4. ZYPREXA [Suspect]
     Dosage: SEE IMAGE
     Dates: start: 20030509
  5. GLYBURIDE W/METFORMIN (GLIBENCLAMIDE, METFORMIN) [Concomitant]
  6. ZESTRIL /USA/ (LISINOPRIL) [Concomitant]
  7. CEPHALEXIN (CEPHALEXIN MONOHYDRATE) CAPSULE [Concomitant]

REACTIONS (18)
  - AGITATION [None]
  - ALANINE AMINOTRANSFERASE INCREASED [None]
  - ASPARTATE AMINOTRANSFERASE INCREASED [None]
  - CONDITION AGGRAVATED [None]
  - DELIRIUM [None]
  - DIABETES MELLITUS NON-INSULIN-DEPENDENT [None]
  - DYSKINESIA [None]
  - FALL [None]
  - HYPERTENSION [None]
  - INFECTION [None]
  - INSOMNIA [None]
  - MENTAL STATUS CHANGES [None]
  - MYOCARDIAL ISCHAEMIA [None]
  - NEUROLEPTIC MALIGNANT SYNDROME [None]
  - RHABDOMYOLYSIS [None]
  - TARDIVE DYSKINESIA [None]
  - URINE KETONE BODY PRESENT [None]
  - WHITE BLOOD CELL COUNT INCREASED [None]
